FAERS Safety Report 4937770-X (Version None)
Quarter: 2006Q1

REPORT INFORMATION
  Report Type: 
  Country: None (occurrence: None)
  Receive Date: 20060308
  Receipt Date: 20060308
  Transmission Date: 20060701
  Serious: Yes (Other)
  Sender: FDA-Public Use
  Company Number: None

PATIENT
  Sex: Male
  Weight: 93.8946 kg

DRUGS (1)
  1. SODIUM CHLORIDE 0.9% [Suspect]
     Indication: INFUSION
     Dosage: 5ML BID -PRE/POST MED IV BOLUS
     Route: 040
     Dates: start: 20060227, end: 20060303

REACTIONS (2)
  - DIZZINESS [None]
  - FEELING ABNORMAL [None]
